FAERS Safety Report 17009714 (Version 1)
Quarter: 2019Q4

REPORT INFORMATION
  Report Type: Spontaneous
  Country: CA (occurrence: CA)
  Receive Date: 20191108
  Receipt Date: 20191108
  Transmission Date: 20200122
  Serious: Yes (Other)
  Sender: FDA-Public Use
  Company Number: CA-PFIZER INC-2019479659

PATIENT
  Sex: Female

DRUGS (1)
  1. GABAPENTIN. [Suspect]
     Active Substance: GABAPENTIN
     Dosage: 100 MG, UNK
     Route: 048

REACTIONS (6)
  - Anxiety [Unknown]
  - Gait disturbance [Unknown]
  - Suicidal ideation [Unknown]
  - Chest discomfort [Unknown]
  - Dyspnoea [Unknown]
  - Visual impairment [Unknown]
